FAERS Safety Report 14821199 (Version 1)
Quarter: 2018Q2

REPORT INFORMATION
  Report Type: Spontaneous
  Country: US (occurrence: US)
  Receive Date: 20180427
  Receipt Date: 20180427
  Transmission Date: 20180711
  Serious: Yes (Other)
  Sender: FDA-Public Use
  Company Number: US-BAUSCH-BL-2018-011656

PATIENT
  Sex: Female

DRUGS (1)
  1. ATIVAN [Suspect]
     Active Substance: LORAZEPAM
     Indication: PRODUCT USED FOR UNKNOWN INDICATION
     Route: 065

REACTIONS (10)
  - Deafness [Unknown]
  - Coma [Unknown]
  - Hip fracture [Unknown]
  - Amnesia [Unknown]
  - Femur fracture [Unknown]
  - Dyspnoea [Unknown]
  - Scapula fracture [Unknown]
  - Nervousness [Unknown]
  - Cerebral haemorrhage [Unknown]
  - Tremor [Unknown]
